FAERS Safety Report 10032170 (Version 1)
Quarter: 2014Q1

REPORT INFORMATION
  Report Type: Report from Study
  Country: PT (occurrence: PT)
  Receive Date: 20140324
  Receipt Date: 20140324
  Transmission Date: 20141002
  Serious: Yes (Hospitalization)
  Sender: FDA-Public Use
  Company Number: PT-ABBVIE-14P-130-1207513-00

PATIENT
  Age: 56 Year
  Sex: Female

DRUGS (9)
  1. HUMIRA [Suspect]
     Indication: RHEUMATOID ARTHRITIS
     Route: 058
  2. ISONIAZIDE [Concomitant]
     Indication: ANTIBIOTIC PROPHYLAXIS
     Dates: start: 20081206, end: 20091019
  3. METHOTREXATE [Concomitant]
     Indication: RHEUMATOID ARTHRITIS
     Dates: start: 19900630
  4. TRAZODONE [Concomitant]
     Indication: DEPRESSION
     Dates: start: 20050421
  5. ACEMETACINE [Concomitant]
     Indication: RHEUMATOID ARTHRITIS
     Dates: start: 20070630
  6. BROMAZEPAM [Concomitant]
     Indication: DEPRESSION
     Dates: start: 20070921
  7. TRAMADOL [Concomitant]
     Indication: PAIN
     Dates: start: 20120817
  8. OMEPRAZOL [Concomitant]
     Indication: PROPHYLAXIS AGAINST GASTROINTESTINAL ULCER
     Dates: start: 20110730
  9. VENLAFAXINE [Concomitant]
     Indication: DEPRESSION
     Dates: start: 20110730

REACTIONS (1)
  - Vertebral foraminal stenosis [Recovered/Resolved]
